FAERS Safety Report 7934622-8 (Version None)
Quarter: 2011Q4

REPORT INFORMATION
  Report Type: 
  Country: None (occurrence: None)
  Receive Date: 20111118
  Receipt Date: 20111108
  Transmission Date: 20120403
  Serious: Yes (Other)
  Sender: FDA-Public Use
  Company Number: TPA2011A07529

PATIENT
  Age: 66 Year
  Sex: Male

DRUGS (6)
  1. ACTOS [Suspect]
     Indication: TYPE 2 DIABETES MELLITUS
     Dosage: 30 MG, 1 IN 1 D, PER ORAL, 45 MG, 1 IN 1 D, PER ORAL, 30 MG, 1 IN 1 D, PER ORAL
     Route: 048
     Dates: start: 20070101, end: 20100601
  2. ACTOS [Suspect]
     Indication: TYPE 2 DIABETES MELLITUS
     Dosage: 30 MG, 1 IN 1 D, PER ORAL, 45 MG, 1 IN 1 D, PER ORAL, 30 MG, 1 IN 1 D, PER ORAL
     Route: 048
     Dates: start: 20100701, end: 20100901
  3. METFORMIN HCL [Concomitant]
  4. COZAAR [Concomitant]
  5. AVAPRO [Concomitant]
  6. GLUCOTROL [Concomitant]

REACTIONS (3)
  - NEOPLASM RECURRENCE [None]
  - BLADDER CANCER [None]
  - RENAL FAILURE ACUTE [None]
